FAERS Safety Report 6766571-5 (Version None)
Quarter: 2010Q2

REPORT INFORMATION
  Report Type: 
  Country: None (occurrence: None)
  Receive Date: 20100611
  Receipt Date: 20100602
  Transmission Date: 20101027
  Serious: Yes (Other)
  Sender: FDA-Public Use
  Company Number: JP-ROCHE-708535

PATIENT
  Sex: Male
  Weight: 60 kg

DRUGS (7)
  1. TOCILIZUMAB [Suspect]
     Indication: RHEUMATOID ARTHRITIS
     Route: 041
     Dates: start: 20081205, end: 20081205
  2. TOCILIZUMAB [Suspect]
     Route: 041
     Dates: start: 20090113, end: 20090113
  3. TOCILIZUMAB [Suspect]
     Route: 041
     Dates: start: 20090209, end: 20090209
  4. TOCILIZUMAB [Suspect]
     Route: 041
     Dates: start: 20090309, end: 20090309
  5. PROGRAF [Concomitant]
     Dosage: DOSEFORM: PERORAL AGENT
     Route: 048
     Dates: start: 20070101, end: 20081214
  6. ISCOTIN [Concomitant]
     Dosage: DOSEFORM: PERORAL AGENT
     Route: 048
     Dates: start: 20081215, end: 20090310
  7. RINDERON [Concomitant]
     Route: 048
     Dates: start: 20040101, end: 20080101

REACTIONS (2)
  - INFECTION [None]
  - INTERSTITIAL LUNG DISEASE [None]
